FAERS Safety Report 11694162 (Version 1)
Quarter: 2015Q4

REPORT INFORMATION
  Report Type: Spontaneous
  Country: US (occurrence: US)
  Receive Date: 20151103
  Receipt Date: 20151103
  Transmission Date: 20160304
  Serious: No
  Sender: FDA-Public Use
  Company Number: US-BAYER-2015-451090

PATIENT
  Sex: Female

DRUGS (1)
  1. DESONATE [Suspect]
     Active Substance: DESONIDE
     Indication: SKIN EXFOLIATION
     Route: 061

REACTIONS (1)
  - Skin exfoliation [None]
